FAERS Safety Report 10252948 (Version 1)
Quarter: 2014Q2

REPORT INFORMATION
  Report Type: Spontaneous
  Country: US (occurrence: None)
  Receive Date: 20140618
  Receipt Date: 20140618
  Transmission Date: 20141212
  Serious: No
  Sender: FDA-Public Use
  Company Number: None

PATIENT
  Age: 67 Year
  Sex: Female
  Weight: 44.86 kg

DRUGS (7)
  1. BUTALBITAL AND ACETAMINOPHEN [Suspect]
     Indication: MIGRAINE
     Dosage: STRENGTH: 325 M.G.  QUANTITY: ONE PILL  FREQUENCY: EVERY 6HRS. TAKEN BY MOUTH
     Route: 048
  2. BUSPIRONE [Concomitant]
  3. TEMAZEPAM [Concomitant]
  4. LOMOTIL [Concomitant]
  5. BENTYL [Concomitant]
  6. ACIDOPHILUS PROBIOTIC [Concomitant]
  7. ZANTAC-75 [Concomitant]

REACTIONS (1)
  - Abdominal pain upper [None]
